FAERS Safety Report 20410047 (Version 1)
Quarter: 2022Q1

REPORT INFORMATION
  Report Type: Spontaneous
  Country: US (occurrence: US)
  Receive Date: 20220201
  Receipt Date: 20220201
  Transmission Date: 20220423
  Serious: Yes (Hospitalization)
  Sender: FDA-Public Use
  Company Number: US-Global Blood Therapeutics Inc-US-GBT-22-00089

PATIENT
  Age: 32 Year
  Sex: Male

DRUGS (4)
  1. OXBRYTA [Suspect]
     Active Substance: VOXELOTOR
     Indication: Haemoglobin C disease
     Route: 048
     Dates: start: 20210202
  2. DEFERASIROX [Concomitant]
     Active Substance: DEFERASIROX
     Indication: Sickle cell disease
     Dosage: NOT PROVIDED
  3. DEFERASIROX [Concomitant]
     Active Substance: DEFERASIROX
     Indication: Haemoglobin C disease
  4. ORENITRAM [Concomitant]
     Active Substance: TREPROSTINIL
     Indication: Pulmonary arterial hypertension
     Dosage: NOT PROVIDED

REACTIONS (2)
  - Sickle cell anaemia with crisis [Unknown]
  - Malaise [Unknown]

NARRATIVE: CASE EVENT DATE: 20211223
